FAERS Safety Report 4581979-4 (Version None)
Quarter: 2005Q1

REPORT INFORMATION
  Report Type: 
  Country: None (occurrence: None)
  Receive Date: 20050119
  Receipt Date: 20040901
  Transmission Date: 20050727
  Serious: Yes (Other)
  Sender: FDA-Public Use
  Company Number: US-JNJFOC-20040707218

PATIENT
  Age: 56 Year
  Sex: Female
  Weight: 59.8748 kg

DRUGS (7)
  1. DOXIL [Suspect]
     Indication: BREAST CANCER METASTATIC
     Dosage: SEE IMAGE
     Route: 042
     Dates: start: 20040518, end: 20040518
  2. DOXIL [Suspect]
     Indication: BREAST CANCER METASTATIC
     Dosage: SEE IMAGE
     Route: 042
     Dates: start: 20040610, end: 20040706
  3. DOXIL [Suspect]
     Indication: BREAST CANCER METASTATIC
     Dosage: SEE IMAGE
     Route: 042
     Dates: start: 20040729
  4. COUMADIN [Concomitant]
  5. SYNTHROID [Concomitant]
  6. COLACE (DOCUSATE SODIUM) [Concomitant]
  7. AROMASIN [Concomitant]

REACTIONS (2)
  - BONE MARROW DEPRESSION [None]
  - MUCOSAL INFLAMMATION [None]
